FAERS Safety Report 11894484 (Version 5)
Quarter: 2016Q2

REPORT INFORMATION
  Report Type: Spontaneous
  Country: US (occurrence: US)
  Receive Date: 20160107
  Receipt Date: 20160406
  Transmission Date: 20160815
  Serious: No
  Sender: FDA-Public Use
  Company Number: US-009507513-1601USA001297

PATIENT
  Sex: Male

DRUGS (1)
  1. DULERA [Suspect]
     Active Substance: FORMOTEROL FUMARATE DIHYDRATE\MOMETASONE FUROATE
     Indication: ASTHMA
     Dosage: 200 MCG/ 5 MCG (1 DF), QD
     Route: 055
     Dates: start: 20140922

REACTIONS (3)
  - Underdose [Unknown]
  - Product quality issue [Unknown]
  - Dyspnoea [Unknown]
